FAERS Safety Report 25340700 (Version 2)
Quarter: 2025Q2

REPORT INFORMATION
  Report Type: Spontaneous
  Country: JP (occurrence: JP)
  Receive Date: 20250521
  Receipt Date: 20250618
  Transmission Date: 20250717
  Serious: Yes (Other)
  Sender: UCB
  Company Number: JP-UCBJ-CD202505426UCBPHAPROD

PATIENT
  Age: 6 Year
  Sex: Male

DRUGS (4)
  1. FINTEPLA [Suspect]
     Active Substance: FENFLURAMINE
     Indication: Lennox-Gastaut syndrome
     Route: 048
     Dates: start: 20250328, end: 20250612
  2. VALPROATE SODIUM [Concomitant]
     Active Substance: VALPROATE SODIUM
     Indication: Product used for unknown indication
     Route: 048
  3. INOVELON [Concomitant]
     Active Substance: RUFINAMIDE
     Indication: Product used for unknown indication
     Route: 048
  4. NITRAZEPAM [Concomitant]
     Active Substance: NITRAZEPAM
     Indication: Product used for unknown indication
     Route: 048

REACTIONS (4)
  - Gastroenteritis norovirus [Recovered/Resolved]
  - Diarrhoea [Recovered/Resolved]
  - Prescribed underdose [Unknown]
  - Off label use [Unknown]

NARRATIVE: CASE EVENT DATE: 20250328
